FAERS Safety Report 24691573 (Version 3)
Quarter: 2025Q1

REPORT INFORMATION
  Report Type: Spontaneous
  Country: CN (occurrence: CN)
  Receive Date: 20241203
  Receipt Date: 20250211
  Transmission Date: 20250409
  Serious: Yes (Life-Threatening, Other)
  Sender: PFIZER
  Company Number: CN-PFIZER INC-PV202400154741

PATIENT
  Age: 26 Year
  Sex: Female
  Weight: 38 kg

DRUGS (15)
  1. MEROPENEM [Suspect]
     Active Substance: MEROPENEM
     Indication: Anti-infective therapy
     Dosage: 0.5 G, 3X/DAY
  2. MEROPENEM [Suspect]
     Active Substance: MEROPENEM
     Dosage: 1 G, 3X/DAY
  3. MEROPENEM [Suspect]
     Active Substance: MEROPENEM
     Dosage: 3 G, TID
  4. MEROPENEM [Suspect]
     Active Substance: MEROPENEM
     Dosage: 2 G, QID
  5. MEROPENEM [Suspect]
     Active Substance: MEROPENEM
     Dosage: 1 G, BID
  6. VANCOMYCIN [Suspect]
     Active Substance: VANCOMYCIN
     Indication: Anti-infective therapy
     Dosage: 1 G, 2X/DAY
  7. NOREPINEPHRINE [Concomitant]
     Active Substance: NOREPINEPHRINE
     Indication: Septic shock
  8. TERLIPRESSIN [Concomitant]
     Active Substance: TERLIPRESSIN
     Indication: Septic shock
  9. METHYLENE BLUE [Concomitant]
     Active Substance: METHYLENE BLUE
     Indication: Septic shock
  10. LEVOSIMENDAN [Concomitant]
     Active Substance: LEVOSIMENDAN
     Indication: Cardiac dysfunction
  11. EPINEPHRINE [Concomitant]
     Active Substance: EPINEPHRINE
     Indication: Cardiac dysfunction
  12. TEICOPLANIN [Concomitant]
     Active Substance: TEICOPLANIN
     Indication: Evidence based treatment
     Dosage: 400 MG, 2X/DAY
  13. TEICOPLANIN [Concomitant]
     Active Substance: TEICOPLANIN
     Dosage: 400 MG, ONCE EVERY THREE DAYS AFTER THREE DOSES
  14. CASPOFUNGIN [Concomitant]
     Active Substance: CASPOFUNGIN
     Indication: Evidence based treatment
     Dosage: 70 MG, DAILY
  15. CASPOFUNGIN [Concomitant]
     Active Substance: CASPOFUNGIN
     Dosage: 50 MG, 1X/DAY

REACTIONS (1)
  - Abortion incomplete [Unknown]
